FAERS Safety Report 10080588 (Version 3)
Quarter: 2019Q1

REPORT INFORMATION
  Report Type: Report from Study
  Country: US (occurrence: US)
  Receive Date: 20140416
  Receipt Date: 20190129
  Transmission Date: 20190417
  Serious: Yes (Other)
  Sender: FDA-Public Use
  Company Number: US-AMGEN INC.-USASP2014026863

PATIENT
  Age: 56 Year
  Sex: Female

DRUGS (2)
  1. ENBREL [Suspect]
     Active Substance: ETANERCEPT
     Dosage: 50 MG, QWK
     Route: 065
     Dates: start: 20080730
  2. ENBREL [Suspect]
     Active Substance: ETANERCEPT
     Indication: RHEUMATOID ARTHRITIS
     Dosage: 50 MG, QWK
     Route: 065
     Dates: start: 20080730

REACTIONS (18)
  - Injection site pruritus [Not Recovered/Not Resolved]
  - Felty^s syndrome [Unknown]
  - Myalgia [Unknown]
  - Nasopharyngitis [Unknown]
  - Vomiting [Recovered/Resolved]
  - Sinusitis [Unknown]
  - Lymphoma [Not Recovered/Not Resolved]
  - Atypical pneumonia [Recovered/Resolved]
  - Injection site swelling [Not Recovered/Not Resolved]
  - White blood cell count abnormal [Unknown]
  - Rash papular [Not Recovered/Not Resolved]
  - Concussion [Unknown]
  - Fall [Unknown]
  - Arthropathy [Unknown]
  - Injection site reaction [Unknown]
  - Rheumatoid arthritis [Recovered/Resolved]
  - Headache [Recovered/Resolved]
  - Lymphocytic leukaemia [Unknown]

NARRATIVE: CASE EVENT DATE: 2012
